FAERS Safety Report 4647581-0 (Version None)
Quarter: 2005Q2

REPORT INFORMATION
  Report Type: 
  Country: None (occurrence: None)
  Receive Date: 20050426
  Receipt Date: 20050413
  Transmission Date: 20051028
  Serious: Yes (Other)
  Sender: FDA-Public Use
  Company Number: 2004207545AU

PATIENT
  Age: 56 Year
  Sex: Female

DRUGS (7)
  1. CELECOXIB (CELECOXIB) [Suspect]
     Indication: POLYP COLORECTAL
     Dosage: 800 MG (400 MG, 2 IN 1 D), ORAL
     Route: 048
     Dates: start: 20010621, end: 20040101
  2. ASPIRIN [Concomitant]
  3. METFORMIN HCL [Concomitant]
  4. SIMVASTATIN [Concomitant]
  5. OMEPRAZOLE [Concomitant]
  6. IRBESARTAN [Concomitant]
  7. INSULIN [Concomitant]

REACTIONS (4)
  - GLOMERULOSCLEROSIS [None]
  - NEPHRITIS INTERSTITIAL [None]
  - RENAL INTERSTITIAL FIBROSIS [None]
  - RENAL TUBULAR DISORDER [None]
